FAERS Safety Report 5254814-9 (Version None)
Quarter: 2007Q1

REPORT INFORMATION
  Report Type: 
  Country: None (occurrence: None)
  Receive Date: 20070305
  Receipt Date: 20070220
  Transmission Date: 20070707
  Serious: Yes (Hospitalization)
  Sender: FDA-Public Use
  Company Number: CH-ELI_LILLY_AND_COMPANY-CH200702004170

PATIENT
  Age: 62 Year
  Sex: Female

DRUGS (4)
  1. ZYPREXA [Suspect]
     Indication: PSYCHOTIC DISORDER
     Dosage: 10 MG, UNK
     Route: 048
     Dates: start: 20061221, end: 20061221
  2. SEROQUEL [Concomitant]
     Dosage: 25 MG, DAILY (1/D)
     Route: 048
     Dates: start: 20061218, end: 20061220
  3. CIPRALEX [Concomitant]
     Dosage: 5 MG, DAILY (1/D)
     Route: 048
     Dates: start: 20061219, end: 20061221
  4. CIPRALEX [Concomitant]
     Dates: start: 20070101

REACTIONS (3)
  - BRAIN CONTUSION [None]
  - CONTUSION [None]
  - FALL [None]
